FAERS Safety Report 6318732-7 (Version None)
Quarter: 2009Q3

REPORT INFORMATION
  Report Type: 
  Country: None (occurrence: None)
  Receive Date: 20090821
  Receipt Date: 20090818
  Transmission Date: 20100115
  Serious: Yes (Other)
  Sender: FDA-Public Use
  Company Number: DE-GENENTECH-288860

PATIENT
  Age: 75 Year
  Sex: Male

DRUGS (5)
  1. LUCENTIS [Suspect]
     Indication: DRUG USE FOR UNKNOWN INDICATION
     Dosage: 3 UNK, 1/MONTH
     Route: 031
     Dates: start: 20070101
  2. LUCENTIS [Suspect]
     Dosage: UNK
     Route: 031
     Dates: start: 20081013
  3. LUCENTIS [Suspect]
     Dosage: UNK
     Route: 031
     Dates: start: 20081117
  4. LUCENTIS [Suspect]
     Dosage: UNK
     Route: 031
     Dates: start: 20081223
  5. ASPIRIN [Concomitant]
     Indication: DRUG USE FOR UNKNOWN INDICATION

REACTIONS (4)
  - CEREBROVASCULAR ACCIDENT [None]
  - RETINAL HAEMORRHAGE [None]
  - RETINAL OEDEMA [None]
  - VISUAL ACUITY REDUCED [None]
